FAERS Safety Report 10468494 (Version 2)
Quarter: 2014Q3

REPORT INFORMATION
  Report Type: Spontaneous
  Country: US (occurrence: US)
  Receive Date: 20140922
  Receipt Date: 20140922
  Transmission Date: 20150326
  Serious: No
  Sender: FDA-Public Use
  Company Number: US-ALLERGAN-1308770US

PATIENT
  Age: 61 Year
  Sex: Female

DRUGS (5)
  1. OTC ALLERGY MEDICATIONS NOS [Concomitant]
     Indication: HYPERSENSITIVITY
  2. LASTACAFT [Suspect]
     Active Substance: ALCAFTADINE
     Indication: HYPERSENSITIVITY
     Dosage: 2 GTT, TID
     Route: 047
     Dates: start: 20130611, end: 20130611
  3. LIPITOR [Concomitant]
     Active Substance: ATORVASTATIN CALCIUM
     Indication: BLOOD CHOLESTEROL INCREASED
     Dosage: UNK
  4. RESTASIS [Concomitant]
     Active Substance: CYCLOSPORINE
     Indication: DRY EYE
     Dosage: UNK
  5. EYE DROPS NOS [Concomitant]
     Active Substance: UNSPECIFIED INGREDIENT
     Indication: GLAUCOMA

REACTIONS (4)
  - Swelling face [Not Recovered/Not Resolved]
  - Inappropriate schedule of drug administration [Unknown]
  - Eyelid oedema [Recovered/Resolved]
  - Ocular hyperaemia [Recovered/Resolved]
